FAERS Safety Report 13119748 (Version 8)
Quarter: 2018Q3

REPORT INFORMATION
  Report Type: Report from Study
  Country: GB (occurrence: GB)
  Receive Date: 20170117
  Receipt Date: 20180705
  Transmission Date: 20181010
  Serious: Yes (Other)
  Sender: FDA-Public Use
  Company Number: GB-BRISTOL-MYERS SQUIBB COMPANY-BMS-2017-001989

PATIENT
  Age: 56 Year
  Sex: Female

DRUGS (2)
  1. ABATACEPT [Suspect]
     Active Substance: ABATACEPT
     Indication: RHEUMATOID ARTHRITIS
     Dosage: 125 MG, QWK
     Route: 058
     Dates: start: 20161202
  2. METHOTREXATE. [Suspect]
     Active Substance: METHOTREXATE
     Indication: PRODUCT USED FOR UNKNOWN INDICATION
     Route: 065

REACTIONS (7)
  - Blister [Unknown]
  - Skin exfoliation [Unknown]
  - Tooth disorder [Unknown]
  - Cellulitis [Unknown]
  - Foot fracture [Unknown]
  - Ingrowing nail [Unknown]
  - Blister infected [Unknown]

NARRATIVE: CASE EVENT DATE: 201711
